FAERS Safety Report 8436893-0 (Version None)
Quarter: 2012Q2

REPORT INFORMATION
  Report Type: 
  Country: None (occurrence: None)
  Receive Date: 20120614
  Receipt Date: 20120605
  Transmission Date: 20120825
  Serious: Yes (Other)
  Sender: FDA-Public Use
  Company Number: JP-PFIZER INC-2012133027

PATIENT
  Age: 21 Year
  Sex: Female

DRUGS (4)
  1. NORGESTREL AND ETHINYL ESTRADIOL [Suspect]
     Indication: OFF LABEL USE
     Dosage: UNK
     Dates: start: 20120301
  2. NORGESTREL AND ETHINYL ESTRADIOL [Suspect]
     Indication: AMENORRHOEA
  3. PREMARIN [Suspect]
     Indication: OFF LABEL USE
     Dosage: UNK
     Route: 048
     Dates: start: 20120301, end: 20120501
  4. PREMARIN [Suspect]
     Indication: AMENORRHOEA

REACTIONS (7)
  - HYDROCEPHALUS [None]
  - ALTERED STATE OF CONSCIOUSNESS [None]
  - MUTISM [None]
  - HYPERSOMNIA [None]
  - OEDEMA [None]
  - GENERAL PHYSICAL HEALTH DETERIORATION [None]
  - ATAXIA [None]
